FAERS Safety Report 24312584 (Version 1)
Quarter: 2024Q3

REPORT INFORMATION
  Report Type: Spontaneous
  Country: US (occurrence: US)
  Receive Date: 20240912
  Receipt Date: 20240912
  Transmission Date: 20241016
  Serious: No
  Sender: LEO PHARM
  Company Number: US-LEO Pharma-373383

PATIENT
  Age: 73 Year
  Sex: Female
  Weight: 63 kg

DRUGS (1)
  1. ADBRY [Suspect]
     Active Substance: TRALOKINUMAB-LDRM
     Indication: Dermatitis atopic
     Dosage: THERAPY REPORTED AS ONGOING
     Route: 058
     Dates: start: 20231129

REACTIONS (1)
  - Rash [Unknown]
